FAERS Safety Report 5446614-1 (Version None)
Quarter: 2007Q3

REPORT INFORMATION
  Report Type: 
  Country: None (occurrence: None)
  Receive Date: 20070907
  Receipt Date: 20070822
  Transmission Date: 20080115
  Serious: Yes (Other)
  Sender: FDA-Public Use
  Company Number: US-PFIZER INC-2007054189

PATIENT
  Sex: Female
  Weight: 68.181 kg

DRUGS (1)
  1. GABAPENTIN [Suspect]
     Indication: NEURALGIA
     Dates: start: 20061204, end: 20061215

REACTIONS (17)
  - COUGH [None]
  - DISTURBANCE IN ATTENTION [None]
  - DIZZINESS [None]
  - DRY SKIN [None]
  - DYSPNOEA [None]
  - INFLAMMATORY PAIN [None]
  - MALAISE [None]
  - MENTAL DISORDER [None]
  - NAIL DISORDER [None]
  - NERVOUS SYSTEM DISORDER [None]
  - SNEEZING [None]
  - SYNCOPE [None]
  - TINNITUS [None]
  - TOOTH EROSION [None]
  - VISION BLURRED [None]
  - VISUAL DISTURBANCE [None]
  - WEIGHT INCREASED [None]
